FAERS Safety Report 5806704-8 (Version None)
Quarter: 2008Q3

REPORT INFORMATION
  Report Type: 
  Country: None (occurrence: None)
  Receive Date: 20080710
  Receipt Date: 20080702
  Transmission Date: 20090109
  Serious: Yes (Hospitalization)
  Sender: FDA-Public Use
  Company Number: LU-AMGEN-UK289774

PATIENT
  Age: 57 Year
  Sex: Female
  Weight: 58 kg

DRUGS (4)
  1. MIMPARA [Suspect]
     Indication: HYPERPARATHYROIDISM SECONDARY
     Route: 065
     Dates: start: 20080131, end: 20080605
  2. ARANESP [Concomitant]
     Route: 065
  3. LASIX [Concomitant]
     Route: 065
  4. MEDROL [Concomitant]
     Route: 065

REACTIONS (3)
  - CEREBRAL HAEMORRHAGE [None]
  - EPILEPSY [None]
  - HYPOCALCAEMIA [None]
